FAERS Safety Report 6734667-X (Version None)
Quarter: 2010Q2

REPORT INFORMATION
  Report Type: 
  Country: None (occurrence: None)
  Receive Date: 20100520
  Receipt Date: 20100512
  Transmission Date: 20101027
  Serious: Yes (Hospitalization)
  Sender: FDA-Public Use
  Company Number: US-JNJFOC-20100505318

PATIENT
  Age: 2 Year
  Sex: Male

DRUGS (2)
  1. TYLENOL CHILDRENS SUSPENSION UNSPECIFIED [Suspect]
     Route: 048
  2. TYLENOL CHILDRENS SUSPENSION UNSPECIFIED [Suspect]
     Indication: DRUG USE FOR UNKNOWN INDICATION
     Route: 048

REACTIONS (3)
  - DYSPNOEA [None]
  - LOWER RESPIRATORY TRACT INFECTION BACTERIAL [None]
  - PRODUCT QUALITY ISSUE [None]
